FAERS Safety Report 8325558-1 (Version None)
Quarter: 2012Q2

REPORT INFORMATION
  Report Type: 
  Country: None (occurrence: None)
  Receive Date: 20120501
  Receipt Date: 20110422
  Transmission Date: 20120825
  Serious: No
  Sender: FDA-Public Use
  Company Number: US-SANOFI-AVENTIS-2011SA025399

PATIENT
  Sex: Female

DRUGS (5)
  1. SOLOSTAR [Suspect]
  2. APIDRA [Suspect]
     Route: 058
  3. SOLOSTAR [Suspect]
  4. LANTUS [Suspect]
     Dosage: DOSE:40 UNIT(S)
     Route: 058
  5. METFORMIN HCL [Concomitant]

REACTIONS (3)
  - PRODUCT QUALITY ISSUE [None]
  - BLOOD GLUCOSE INCREASED [None]
  - DIZZINESS [None]
